FAERS Safety Report 7677175-4 (Version None)
Quarter: 2011Q3

REPORT INFORMATION
  Report Type: 
  Country: None (occurrence: None)
  Receive Date: 20110811
  Receipt Date: 20110728
  Transmission Date: 20111222
  Serious: Yes (Hospitalization, Other)
  Sender: FDA-Public Use
  Company Number: US-ELI_LILLY_AND_COMPANY-US201108001260

PATIENT
  Sex: Female

DRUGS (14)
  1. ASPIRIN                                 /SCH/ [Concomitant]
     Dosage: 81 MG, QD
  2. FORTEO [Suspect]
     Dosage: 20 UG, QD
  3. NIFEREX FORTE [Concomitant]
     Dosage: 1 DF, QD
     Route: 048
  4. VITAMIN D [Concomitant]
     Dosage: 1000 IU, QD
  5. PROTONIX [Concomitant]
     Dosage: 4 MG, QD
  6. WARFARIN [Concomitant]
     Dosage: 5 MG, QD
  7. DOCUSATE [Concomitant]
     Dosage: 100 MG, BID
  8. PERCOCET [Concomitant]
     Indication: PAIN
     Dosage: 1 DF, TID
     Route: 048
  9. NEXIUM [Concomitant]
     Dosage: 40 MG, QD
  10. LISINOPRIL [Concomitant]
     Dosage: 10 MG, EACH EVENING
  11. AMITIZA [Concomitant]
     Dosage: 24 UG, QD
     Route: 048
  12. CITALOPRAM [Concomitant]
     Dosage: 20 MG, EACH MORNING
  13. ZOCOR [Concomitant]
     Dosage: 40 MG, QD
  14. CALCIUM CARBONATE [Concomitant]
     Dosage: 600 MG, BID

REACTIONS (1)
  - ANAEMIA [None]
